FAERS Safety Report 13131257 (Version 1)
Quarter: 2017Q1

REPORT INFORMATION
  Report Type: Spontaneous
  Country: US (occurrence: US)
  Receive Date: 20170119
  Receipt Date: 20170119
  Transmission Date: 20170428
  Serious: No
  Sender: FDA-Public Use
  Company Number: US-MEDA-2017010042

PATIENT
  Age: 82 Year
  Sex: Male
  Weight: 106 kg

DRUGS (5)
  1. MUSE [Suspect]
     Active Substance: ALPROSTADIL
     Indication: ERECTILE DYSFUNCTION
     Route: 066
     Dates: start: 201611
  2. LISINOPRIL. [Concomitant]
     Active Substance: LISINOPRIL
     Indication: HYPERTENSION
  3. BABY ASPIRIN [Concomitant]
     Active Substance: ASPIRIN
  4. GABAPENTIN. [Concomitant]
     Active Substance: GABAPENTIN
  5. LIPITOR [Concomitant]
     Active Substance: ATORVASTATIN CALCIUM
     Indication: BLOOD CHOLESTEROL INCREASED

REACTIONS (2)
  - Drug ineffective [Unknown]
  - Wrong technique in product usage process [Recovered/Resolved]

NARRATIVE: CASE EVENT DATE: 201611
